FAERS Safety Report 9686337 (Version 3)
Quarter: 2013Q4

REPORT INFORMATION
  Report Type: Report from Study
  Country: FR (occurrence: FR)
  Receive Date: 20131113
  Receipt Date: 20131119
  Transmission Date: 20140711
  Serious: Yes (Hospitalization, Other)
  Sender: FDA-Public Use
  Company Number: FR-GILEAD-2013-0087025

PATIENT
  Age: 63 Year
  Sex: Female
  Weight: 48 kg

DRUGS (2)
  1. AMBRISENTAN [Suspect]
     Indication: PULMONARY ARTERIAL HYPERTENSION
     Dosage: 5MG PER DAY
     Route: 048
     Dates: start: 20130920
  2. TADALAFIL [Suspect]
     Indication: PULMONARY ARTERIAL HYPERTENSION
     Dosage: 20MG PER DAY
     Route: 048
     Dates: start: 20130920

REACTIONS (2)
  - Pleural effusion [Recovered/Resolved]
  - Cardiac failure [Recovered/Resolved]
